FAERS Safety Report 4889571-9 (Version None)
Quarter: 2006Q1

REPORT INFORMATION
  Report Type: 
  Country: None (occurrence: None)
  Receive Date: 20060120
  Receipt Date: 20060111
  Transmission Date: 20060701
  Serious: Yes (Death)
  Sender: FDA-Public Use
  Company Number: 13238

PATIENT
  Age: 41 Year
  Sex: Male
  Weight: 83.91 kg

DRUGS (1)
  1. PACLITAXEL [Suspect]

REACTIONS (1)
  - RASH [None]
